FAERS Safety Report 17755534 (Version 1)
Quarter: 2020Q2

REPORT INFORMATION
  Report Type: Spontaneous
  Country: US (occurrence: US)
  Receive Date: 20200507
  Receipt Date: 20200507
  Transmission Date: 20200714
  Serious: No
  Sender: FDA-Public Use
  Company Number: US-PFIZER INC-2020181494

PATIENT
  Age: 37 Year
  Sex: Male
  Weight: 86.18 kg

DRUGS (1)
  1. SILDENAFIL CITRATE. [Suspect]
     Active Substance: SILDENAFIL CITRATE
     Dosage: UNK( TAKE A 100MG SILDENAFIL AND CUT IT IN HALF, CLARIFYING HE WAS TAKING A 50MG DOSE OF SILDENAFIL)

REACTIONS (1)
  - Drug ineffective [Unknown]

NARRATIVE: CASE EVENT DATE: 2015
